FAERS Safety Report 6454695-1 (Version None)
Quarter: 2009Q4

REPORT INFORMATION
  Report Type: 
  Country: None (occurrence: None)
  Receive Date: 20091124
  Receipt Date: 20091118
  Transmission Date: 20100525
  Serious: Yes (Hospitalization)
  Sender: FDA-Public Use
  Company Number: ES-ELI_LILLY_AND_COMPANY-ES200709003752

PATIENT
  Sex: Male
  Weight: 82 kg

DRUGS (8)
  1. PEMETREXED [Suspect]
     Indication: NON-SMALL CELL LUNG CANCER
     Dosage: 500 MG/M2, DAY 1 OF 21 DAY CYCLE
     Route: 042
     Dates: start: 20070713
  2. DIOVAN [Concomitant]
     Indication: HYPERTENSION
  3. CARDYL [Concomitant]
     Indication: DYSLIPIDAEMIA
  4. TERTENSIF [Concomitant]
     Indication: HYPERTENSION
  5. PARAPRES [Concomitant]
     Indication: HYPERTENSION
  6. ADIRO [Concomitant]
     Indication: PROPHYLAXIS
     Dosage: 100 MG, UNK
  7. ENANTYUM [Concomitant]
     Indication: PAIN
  8. HEPARIN [Concomitant]
     Indication: PROPHYLAXIS

REACTIONS (1)
  - MUSCULAR WEAKNESS [None]
